FAERS Safety Report 11995853 (Version 2)
Quarter: 2017Q1

REPORT INFORMATION
  Report Type: Spontaneous
  Country: US (occurrence: US)
  Receive Date: 20160203
  Receipt Date: 20170206
  Transmission Date: 20170428
  Serious: No
  Sender: FDA-Public Use
  Company Number: US-DSJP-DSU-2015-110646

PATIENT
  Sex: Female

DRUGS (1)
  1. EVOXAC AG [Suspect]
     Active Substance: CEVIMELINE HYDROCHLORIDE
     Indication: SJOGREN^S SYNDROME
     Dosage: 30 MG, TID
     Dates: start: 201302

REACTIONS (10)
  - Dyspepsia [Unknown]
  - Dry skin [Unknown]
  - Weight decreased [Unknown]
  - Abdominal pain upper [Unknown]
  - Breath odour [Unknown]
  - Anal pruritus [Unknown]
  - Dry mouth [Unknown]
  - Alopecia [Unknown]
  - Vulvovaginal discomfort [Unknown]
  - Dehydration [Unknown]
